FAERS Safety Report 4874591-0 (Version None)
Quarter: 2006Q1

REPORT INFORMATION
  Report Type: 
  Country: None (occurrence: None)
  Receive Date: 20060106
  Receipt Date: 20051227
  Transmission Date: 20060701
  Serious: Yes (Death, Hospitalization)
  Sender: FDA-Public Use
  Company Number: CA-MERCK-0601CAN00012

PATIENT
  Age: 61 Year
  Sex: Female
  Weight: 64 kg

DRUGS (7)
  1. VIOXX [Suspect]
     Indication: ARTHRITIS
     Route: 048
     Dates: start: 20020201, end: 20020601
  2. VIOXX [Suspect]
     Route: 048
     Dates: start: 20030301, end: 20030921
  3. ASPIRIN [Concomitant]
     Route: 065
     Dates: end: 20030901
  4. LANSOPRAZOLE [Concomitant]
     Indication: DYSPEPSIA
     Route: 065
     Dates: start: 20030401
  5. BETAMETHASONE [Concomitant]
     Indication: PSORIASIS
     Route: 061
  6. CELECOXIB [Concomitant]
     Indication: ARTHRITIS
     Route: 065
     Dates: start: 20010101, end: 20020101
  7. CELECOXIB [Concomitant]
     Route: 065
     Dates: start: 20020401, end: 20030301

REACTIONS (3)
  - ARTERIOSCLEROSIS CORONARY ARTERY [None]
  - GASTROOESOPHAGEAL REFLUX DISEASE [None]
  - MYOCARDIAL INFARCTION [None]
